FAERS Safety Report 9792220 (Version 2)
Quarter: 2014Q1

REPORT INFORMATION
  Report Type: Report from Study
  Country: US (occurrence: US)
  Receive Date: 20140102
  Receipt Date: 20140102
  Transmission Date: 20141002
  Serious: Yes (Other)
  Sender: FDA-Public Use
  Company Number: US-IPSEN BIOPHARMACEUTICALS, INC.-2013-4524

PATIENT
  Age: 65 Year
  Sex: Female
  Weight: 89 kg

DRUGS (13)
  1. SOMATULINE DEPOT INJECTION (90MG) [Suspect]
     Indication: CARCINOID TUMOUR
     Dosage: 120 MG
     Route: 058
     Dates: start: 201210, end: 2013
  2. SOMATULINE DEPOT INJECTION (90MG) [Suspect]
     Indication: FLUSHING
     Dosage: NOT REPORTED
     Route: 058
     Dates: start: 2013
  3. SOMATULINE DEPOT INJECTION (90MG) [Suspect]
     Indication: OFF LABEL USE
  4. METFORMIN [Suspect]
     Indication: PRODUCT USED FOR UNKNOWN INDICATION
     Dosage: NOT REPORTED
     Route: 065
     Dates: start: 201309
  5. AMLODIPINE [Concomitant]
     Indication: PRODUCT USED FOR UNKNOWN INDICATION
     Dosage: NOT REPORTED
     Route: 065
  6. LOSARTAN [Concomitant]
     Indication: PRODUCT USED FOR UNKNOWN INDICATION
     Dosage: NOT REPORTED
     Route: 065
  7. DOCUSATE [Concomitant]
     Indication: CONSTIPATION
     Dosage: NOT REPORTED
     Route: 065
  8. AMITRIPTYLINE [Concomitant]
     Indication: NEURALGIA
     Dosage: NOT REPORTED
     Route: 065
  9. LORAZEPAM [Concomitant]
     Indication: PRODUCT USED FOR UNKNOWN INDICATION
     Dosage: NOT REPORTED
     Route: 065
  10. LABETALOL [Concomitant]
     Indication: PRODUCT USED FOR UNKNOWN INDICATION
     Dosage: NOT REPORTED
     Route: 065
  11. MIRALAX [Concomitant]
     Indication: DEHYDRATION
     Dosage: NOT REPORTED
     Route: 065
  12. INSULIN [Concomitant]
     Indication: DIABETES MELLITUS
     Dosage: NOT REPORTED
     Route: 065
  13. PRAVASTATIN [Concomitant]
     Indication: PRODUCT USED FOR UNKNOWN INDICATION
     Dosage: NOT REPORTED
     Route: 065

REACTIONS (11)
  - Rash [Not Recovered/Not Resolved]
  - Diarrhoea [Not Recovered/Not Resolved]
  - Nausea [Recovered/Resolved]
  - Vomiting [Recovered/Resolved]
  - Abdominal pain [Recovered/Resolved]
  - Muscle spasms [Not Recovered/Not Resolved]
  - Arthritis [Not Recovered/Not Resolved]
  - Disease recurrence [Not Recovered/Not Resolved]
  - Injection site mass [Unknown]
  - Incorrect route of drug administration [Unknown]
  - Underdose [Unknown]
